FAERS Safety Report 14193204 (Version 1)
Quarter: 2017Q4

REPORT INFORMATION
  Report Type: Spontaneous
  Country: US (occurrence: US)
  Receive Date: 20171116
  Receipt Date: 20171116
  Transmission Date: 20180321
  Serious: Yes (Hospitalization)
  Sender: FDA-Public Use
  Company Number: US-UNICHEM PHARMACEUTICALS (USA) INC-UCM201711-000279

PATIENT
  Age: 32 Year
  Sex: Male

DRUGS (1)
  1. LAMOTRIGINE. [Suspect]
     Active Substance: LAMOTRIGINE

REACTIONS (6)
  - Encephalopathy [Recovered/Resolved]
  - Haemodynamic instability [Unknown]
  - Overdose [Unknown]
  - Muscle rigidity [Recovered/Resolved]
  - Toxicity to various agents [Unknown]
  - Agitation [Unknown]
